FAERS Safety Report 21656562 (Version 1)
Quarter: 2022Q4

REPORT INFORMATION
  Report Type: Spontaneous
  Country: US (occurrence: US)
  Receive Date: 20221129
  Receipt Date: 20221129
  Transmission Date: 20230113
  Serious: No
  Sender: FDA-Public Use
  Company Number: US-BIOVITRUM-2022US13739

PATIENT
  Sex: Male
  Weight: 6 kg

DRUGS (11)
  1. SYNAGIS [Suspect]
     Active Substance: PALIVIZUMAB
     Indication: Bronchopulmonary dysplasia
     Dosage: 15 MG/KG INTO THE MUSCLE
  2. MUPIROCIN [Concomitant]
     Active Substance: MUPIROCIN
     Dosage: 2 % OINT. (GM)
  3. FLOVENT HFA [Concomitant]
     Active Substance: FLUTICASONE PROPIONATE
     Dosage: 44 MCG W/ADAP
  4. SILDENAFIL CITRATE [Concomitant]
     Active Substance: SILDENAFIL CITRATE
     Dosage: 10 MG/ML SUSP RECON
  5. IBUPROFEN [Concomitant]
     Active Substance: IBUPROFEN
     Dosage: 100 MG/5ML ORAL SUSP
  6. NYSTATIN [Concomitant]
     Active Substance: NYSTATIN
     Dosage: 100000/G OINT. (GM)
  7. TRIAMCINOLONE ACETONIDE [Concomitant]
     Active Substance: TRIAMCINOLONE ACETONIDE
     Dosage: 0.1 % CREAM(GM)
  8. SYNAGIS [Suspect]
     Active Substance: PALIVIZUMAB
     Indication: Acute respiratory failure
  9. SYNAGIS [Suspect]
     Active Substance: PALIVIZUMAB
     Indication: Chronic respiratory failure
  10. SYNAGIS [Suspect]
     Active Substance: PALIVIZUMAB
     Indication: Pulmonary hypertension
  11. SYNAGIS [Suspect]
     Active Substance: PALIVIZUMAB
     Indication: Respiratory failure

REACTIONS (2)
  - Teething [Unknown]
  - Weight decreased [Unknown]
